FAERS Safety Report 10198142 (Version 1)
Quarter: 2014Q2

REPORT INFORMATION
  Report Type: Spontaneous
  Country: US (occurrence: US)
  Receive Date: 20140527
  Receipt Date: 20140527
  Transmission Date: 20141212
  Serious: No
  Sender: FDA-Public Use
  Company Number: US-NOVEN-13US006913

PATIENT
  Sex: Female

DRUGS (1)
  1. DAYTRANA [Suspect]
     Indication: ATTENTION DEFICIT/HYPERACTIVITY DISORDER
     Dosage: 20 MG, UNK
     Route: 062
     Dates: start: 201302, end: 201305

REACTIONS (6)
  - Application site swelling [Recovering/Resolving]
  - Application site erythema [Recovering/Resolving]
  - Rash generalised [Recovering/Resolving]
  - Application site pruritus [Recovering/Resolving]
  - Application site haemorrhage [Recovering/Resolving]
  - Drug administered at inappropriate site [Recovering/Resolving]
